FAERS Safety Report 16008235 (Version 2)
Quarter: 2019Q1

REPORT INFORMATION
  Report Type: Spontaneous
  Country: GB (occurrence: GB)
  Receive Date: 20190226
  Receipt Date: 20190304
  Transmission Date: 20190418
  Serious: Yes (Other)
  Sender: FDA-Public Use
  Company Number: GB-MYLANLABS-2019M1017832

PATIENT
  Age: 62 Year
  Sex: Female

DRUGS (1)
  1. CLOZARIL [Suspect]
     Active Substance: CLOZAPINE
     Indication: SCHIZOPHRENIA
     Dosage: UNK
     Route: 048
     Dates: start: 20041115, end: 201902

REACTIONS (9)
  - Initial insomnia [Unknown]
  - Neutrophil count decreased [Recovered/Resolved]
  - Platelet count increased [Unknown]
  - Anxiety [Unknown]
  - Haemoglobin decreased [Recovering/Resolving]
  - Lung neoplasm malignant [Unknown]
  - White blood cell count decreased [Recovered/Resolved]
  - Chills [Unknown]
  - Platelet count decreased [Recovered/Resolved]

NARRATIVE: CASE EVENT DATE: 201902
